FAERS Safety Report 8788335 (Version 1)
Quarter: 2012Q4

REPORT INFORMATION
  Report Type: Report from Study
  Country: US (occurrence: US)
  Receive Date: 20120914
  Receipt Date: 20120914
  Transmission Date: 20130627
  Serious: No
  Sender: FDA-Public Use
  Company Number: US-VERTEX PHARMACEUTICAL INC.-AE-2012-011627

PATIENT
  Age: 57 Year
  Sex: Male
  Weight: 79.55 kg

DRUGS (3)
  1. INCIVEK [Suspect]
     Indication: HEPATITIS C
     Route: 048
  2. COPEGUS [Concomitant]
     Indication: HEPATITIS C
  3. PEGINTRON KIT [Concomitant]
     Indication: HEPATITIS C

REACTIONS (2)
  - Lip dry [Unknown]
  - Haemorrhoids [Unknown]
